FAERS Safety Report 10970958 (Version 1)
Quarter: 2015Q1

REPORT INFORMATION
  Report Type: Spontaneous
  Country: None (occurrence: None)
  Receive Date: 20150226
  Receipt Date: 20150226
  Transmission Date: 20150721
  Serious: No
  Sender: FDA-Public Use
  Company Number: TPA2010A02061

PATIENT
  Age: 58 Year
  Sex: Male
  Weight: 92.99 kg

DRUGS (8)
  1. LEVOTHYROXINE [Concomitant]
     Active Substance: LEVOTHYROXINE
  2. CLARITIN [Concomitant]
     Active Substance: LORATADINE
  3. ULORIC [Suspect]
     Active Substance: FEBUXOSTAT
     Indication: GOUT
     Route: 048
     Dates: start: 20100402, end: 20100409
  4. MUCINEX (GUAIFENESIN) [Concomitant]
  5. COLCHICINE. [Concomitant]
     Active Substance: COLCHICINE
  6. ADVIL COLD AND SINUS (PSEUDOEPHEDRINE HYDROCHLORIDE, IBUPROFEN) [Concomitant]
  7. ZYCAM (ZINC GLUCONATE) [Concomitant]
  8. AUGMENTIN (AMOXICILLIN, CLAVULANATE POTASSIUM) [Concomitant]

REACTIONS (1)
  - Fatigue [None]

NARRATIVE: CASE EVENT DATE: 201004
